FAERS Safety Report 5902375-0 (Version None)
Quarter: 2008Q3

REPORT INFORMATION
  Report Type: 
  Country: None (occurrence: None)
  Receive Date: 20080919
  Receipt Date: 20080710
  Transmission Date: 20090109
  Serious: No
  Sender: FDA-Public Use
  Company Number: US-WYE-H05036908

PATIENT
  Age: 59 Year
  Sex: Female
  Weight: 79.9 kg

DRUGS (7)
  1. PRISTIQ [Suspect]
     Indication: MAJOR DEPRESSION
     Dosage: 50 MG 1X PER 1 DAY, ORAL
     Route: 048
     Dates: start: 20080630
  2. KLONOPIN [Concomitant]
  3. FISH OIL, HYDROGENATED (FISH OIL, HYDROGENATED) [Concomitant]
  4. SYNTHROID [Concomitant]
  5. VITAMIN D [Concomitant]
  6. CALCIUM (CALCIUM) [Concomitant]
  7. FLEXERIL [Concomitant]

REACTIONS (1)
  - VISUAL IMPAIRMENT [None]
